FAERS Safety Report 8882585 (Version 1)
Quarter: 2012Q4

REPORT INFORMATION
  Report Type: 
  Country: CA (occurrence: CA)
  Receive Date: 20121104
  Receipt Date: 20121104
  Transmission Date: 20130627
  Serious: Yes (Other)
  Sender: FDA-Public Use
  Company Number: PHHY2008CA26119

PATIENT
  Sex: Female

DRUGS (2)
  1. SANDOSTATIN LAR [Suspect]
     Indication: CARCINOID TUMOUR
     Dosage: 30 mg, every 4 weeks
     Route: 030
     Dates: start: 20050913
  2. SANDOSTATIN LAR [Suspect]
     Dosage: 30 mg every 3 weeks
     Route: 030

REACTIONS (9)
  - Malignant neoplasm progression [Unknown]
  - Pancreatic disorder [Unknown]
  - Solar lentigo [Unknown]
  - Tumour marker increased [Unknown]
  - Blood pressure decreased [Unknown]
  - Anxiety [Unknown]
  - Fatigue [Unknown]
  - Nasopharyngitis [Unknown]
  - Heart rate decreased [Unknown]
